FAERS Safety Report 23988384 (Version 2)
Quarter: 2024Q3

REPORT INFORMATION
  Report Type: Report from Study
  Country: US (occurrence: US)
  Receive Date: 20240619
  Receipt Date: 20240704
  Transmission Date: 20241017
  Serious: No
  Sender: ALEXION PHARMACEUTICALS
  Company Number: US-ALXN-202406USA000649US

PATIENT
  Age: 62 Year
  Sex: Female

DRUGS (1)
  1. STRENSIQ [Suspect]
     Active Substance: ASFOTASE ALFA
     Indication: Hypophosphatasia
     Dosage: 192 MILLIGRAM, Q3W
     Route: 058
     Dates: start: 20240518

REACTIONS (6)
  - Injection site swelling [Recovered/Resolved]
  - Glycosylated haemoglobin increased [Unknown]
  - Injection site erythema [Recovered/Resolved]
  - Injection site pruritus [Recovered/Resolved]
  - Cyst [Recovering/Resolving]
  - Haematocrit increased [Unknown]

NARRATIVE: CASE EVENT DATE: 20240610
